FAERS Safety Report 15849169 (Version 1)
Quarter: 2019Q1

REPORT INFORMATION
  Report Type: Spontaneous
  Country: FR (occurrence: FR)
  Receive Date: 20190121
  Receipt Date: 20190121
  Transmission Date: 20190417
  Serious: Yes (Other)
  Sender: FDA-Public Use
  Company Number: FR-JNJFOC-20190120781

PATIENT
  Age: 45 Year
  Sex: Female
  Weight: 81 kg

DRUGS (1)
  1. STELARA [Suspect]
     Active Substance: USTEKINUMAB
     Indication: ENTEROCOLITIS HAEMORRHAGIC
     Route: 042
     Dates: start: 20181119

REACTIONS (2)
  - Hot flush [Recovered/Resolved]
  - Vertigo [Recovered/Resolved]

NARRATIVE: CASE EVENT DATE: 20181119
